FAERS Safety Report 10248934 (Version 1)
Quarter: 2014Q2

REPORT INFORMATION
  Report Type: Spontaneous
  Country: FR (occurrence: FR)
  Receive Date: 20140620
  Receipt Date: 20140620
  Transmission Date: 20141212
  Serious: Yes (Death, Hospitalization)
  Sender: FDA-Public Use
  Company Number: FR-JNJFOC-20140611191

PATIENT
  Age: 65 Year
  Sex: Male
  Weight: 122.99 kg

DRUGS (2)
  1. XARELTO [Suspect]
     Indication: PRODUCT USED FOR UNKNOWN INDICATION
     Route: 048
     Dates: start: 20140520, end: 20140520
  2. LOPRESSOR [Concomitant]
     Route: 065

REACTIONS (2)
  - Aortic dissection [Fatal]
  - Haemorrhage [Fatal]
